FAERS Safety Report 17731862 (Version 1)
Quarter: 2020Q2

REPORT INFORMATION
  Report Type: Spontaneous
  Country: US (occurrence: US)
  Receive Date: 20200501
  Receipt Date: 20200501
  Transmission Date: 20200714
  Serious: No
  Sender: FDA-Public Use
  Company Number: US-ELI_LILLY_AND_COMPANY-US202004009135

PATIENT
  Sex: Male

DRUGS (1)
  1. HUMALOG [Suspect]
     Active Substance: INSULIN LISPRO
     Indication: PRODUCT USED FOR UNKNOWN INDICATION
     Dosage: 39 U, UNKNOWN
     Route: 058

REACTIONS (3)
  - Blood glucose increased [Unknown]
  - Blood glucose decreased [Unknown]
  - Malaise [Unknown]

NARRATIVE: CASE EVENT DATE: 202003
